FAERS Safety Report 22186209 (Version 1)
Quarter: 2023Q2

REPORT INFORMATION
  Report Type: Spontaneous
  Country: NL (occurrence: NL)
  Receive Date: 20230407
  Receipt Date: 20230407
  Transmission Date: 20230721
  Serious: Yes (Other)
  Sender: FDA-Public Use
  Company Number: None

PATIENT
  Sex: Female
  Weight: 60 kg

DRUGS (3)
  1. METOPROLOL [Suspect]
     Active Substance: METOPROLOL
     Indication: Hypertension
     Dosage: 50 MILLIGRAM DAILY; 1 X DAILY 1 PIECE, BRAND NAME NOT SPECIFIED
     Route: 065
     Dates: start: 20230216
  2. PREGABALIN [Suspect]
     Active Substance: PREGABALIN
     Indication: Restlessness
     Dosage: 4X75 GRAMS DIVIDED OVER 3 MOMENTS, BRAND NAME NOT SPECIFIED
     Route: 065
     Dates: start: 20230216
  3. ETHINYLESTRADIOL/LEVONORGESTREL(TRINOR/TRIGYNON) [Concomitant]
     Indication: Product used for unknown indication
     Dosage: BRAND NAME NOT SPECIFIED
     Route: 065

REACTIONS (3)
  - Suicidal ideation [Recovering/Resolving]
  - Aggression [Recovering/Resolving]
  - Depressed mood [Recovered/Resolved]
